FAERS Safety Report 11130202 (Version 2)
Quarter: 2015Q2

REPORT INFORMATION
  Report Type: Spontaneous
  Country: JP (occurrence: JP)
  Receive Date: 20150521
  Receipt Date: 20150608
  Transmission Date: 20150821
  Serious: Yes (Hospitalization)
  Sender: FDA-Public Use
  Company Number: JP-ROCHE-1566585

PATIENT
  Age: 68 Year
  Sex: Male

DRUGS (10)
  1. URSO [Concomitant]
     Active Substance: URSODIOL
     Route: 065
     Dates: start: 20140728
  2. AVASTIN [Suspect]
     Active Substance: BEVACIZUMAB
     Indication: RECTAL CANCER
     Route: 041
     Dates: start: 20140728
  3. TS-1 [Concomitant]
     Active Substance: GIMERACIL\OTERACIL\TEGAFUR
     Indication: RECTAL CANCER
     Route: 048
     Dates: start: 20140728
  4. IRINOTECAN HYDROCHLORIDE. [Concomitant]
     Active Substance: IRINOTECAN HYDROCHLORIDE
     Indication: RECTAL CANCER
     Route: 041
     Dates: start: 20140728
  5. HIRUDOID (HEPARINOIDS) [Concomitant]
     Dosage: PROPER QUANTITY AND PROPERLY
     Route: 003
  6. LOPENA [Concomitant]
     Dosage: PROPER QUANTITY AND SINGLE USE
     Route: 048
     Dates: start: 20140825
  7. ONBREZ [Concomitant]
     Active Substance: INDACATEROL
     Route: 055
     Dates: start: 20140728
  8. SPIRIVA [Concomitant]
     Active Substance: TIOTROPIUM BROMIDE MONOHYDRATE
     Route: 055
     Dates: start: 20140728
  9. SODIUM BICARBONATE. [Concomitant]
     Active Substance: SODIUM BICARBONATE
     Route: 065
     Dates: start: 20140728
  10. DECADRON [Concomitant]
     Active Substance: DEXAMETHASONE
     Route: 065

REACTIONS (1)
  - Bile duct stenosis [Recovered/Resolved]

NARRATIVE: CASE EVENT DATE: 20150416
